FAERS Safety Report 9878105 (Version 2)
Quarter: 2014Q1

REPORT INFORMATION
  Report Type: Spontaneous
  Country: US (occurrence: US)
  Receive Date: 20140206
  Receipt Date: 20140216
  Transmission Date: 20141002
  Serious: No
  Sender: FDA-Public Use
  Company Number: US-009507513-1401USA013407

PATIENT
  Age: 41 Year
  Sex: Female

DRUGS (8)
  1. PEGINTRON [Suspect]
     Indication: HEPATITIS C
     Dosage: REDIPEN 0.5 ML, ONCE A WEEK
     Route: 058
     Dates: start: 20140122
  2. REBETOL [Suspect]
     Indication: HEPATITIS C
     Dosage: 2 PILLS B.I.D (TWICE A DAY)
     Route: 048
     Dates: start: 20140122
  3. SOVALDI [Concomitant]
     Dosage: 400 MG, QD
  4. ZANTAC [Concomitant]
     Dosage: 150 MG, BID
  5. PRILOSEC [Concomitant]
     Dosage: 20 MG, BID
  6. VICODIN [Concomitant]
     Dosage: 1 EVERY 4 HOURS P.R.N.
  7. TEMAZEPAM [Concomitant]
     Dosage: 1 TO 2 AT BED TIME
  8. ABILIFY [Concomitant]
     Dosage: 15 MG, HS

REACTIONS (10)
  - Cyanosis [Unknown]
  - Depression [Unknown]
  - Myalgia [Unknown]
  - Hypoaesthesia [Unknown]
  - Angiopathy [Unknown]
  - Nightmare [Unknown]
  - Depression [Unknown]
  - Poor quality sleep [Unknown]
  - Drug dose omission [Unknown]
  - Product quality issue [Unknown]
